FAERS Safety Report 7955762-3 (Version None)
Quarter: 2011Q4

REPORT INFORMATION
  Report Type: 
  Country: None (occurrence: None)
  Receive Date: 20111204
  Receipt Date: 20111126
  Transmission Date: 20120403
  Serious: Yes (Other)
  Sender: FDA-Public Use
  Company Number: US-CEPHALON-US010706

PATIENT
  Sex: Female
  Weight: 64 kg

DRUGS (7)
  1. AMBIEN [Suspect]
     Indication: INSOMNIA
     Route: 048
  2. HYDROCODONE [Suspect]
     Indication: MIGRAINE
     Route: 048
  3. CELEBREX [Suspect]
     Indication: MIGRAINE
     Route: 048
  4. PROVIGIL [Suspect]
     Indication: FATIGUE
     Route: 048
     Dates: start: 20030212, end: 20030218
  5. TRILEPTAL [Suspect]
     Indication: MIGRAINE
     Route: 048
  6. ATENOLOL [Suspect]
     Indication: HYPOTENSION
     Route: 048
  7. EFFEXOR [Suspect]
     Indication: HYPOTENSION
     Route: 048

REACTIONS (4)
  - HEMIPARESIS [None]
  - VASOSPASM [None]
  - DRUG INTERACTION [None]
  - MIGRAINE [None]
